FAERS Safety Report 6864898-X (Version None)
Quarter: 2010Q3

REPORT INFORMATION
  Report Type: 
  Country: None (occurrence: None)
  Receive Date: 20100721
  Receipt Date: 20080423
  Transmission Date: 20110219
  Serious: No
  Sender: FDA-Public Use
  Company Number: US-PFIZER INC-2008031204

PATIENT
  Sex: Male
  Weight: 100 kg

DRUGS (6)
  1. CHANTIX [Interacting]
  2. GABAPENTIN [Interacting]
  3. CELEBREX [Suspect]
  4. KLONOPIN [Concomitant]
     Indication: SLEEP DISORDER
  5. TRAZODONE HYDROCHLORIDE [Concomitant]
  6. HYZAAR [Concomitant]

REACTIONS (3)
  - DRUG DOSE OMISSION [None]
  - DRUG INTERACTION [None]
  - PAIN IN EXTREMITY [None]
